FAERS Safety Report 17998645 (Version 6)
Quarter: 2021Q3

REPORT INFORMATION
  Report Type: Report from Study
  Country: DE (occurrence: DE)
  Receive Date: 20200709
  Receipt Date: 20210904
  Transmission Date: 20211014
  Serious: Yes (Other)
  Sender: FDA-Public Use
  Company Number: DE-TAKEDA-2020TUS029646

PATIENT
  Age: 30 Year
  Sex: Female

DRUGS (16)
  1. AZATHIOPRIN [Suspect]
     Active Substance: AZATHIOPRINE
     Dosage: UNK
     Route: 048
  2. INFLIXIMAB [Concomitant]
     Active Substance: INFLIXIMAB
     Dosage: 368 MILLIGRAM, Q4WEEKS
     Route: 042
     Dates: start: 20180905, end: 20181212
  3. VEDOLIZUMAB [Suspect]
     Active Substance: VEDOLIZUMAB
     Indication: CROHN^S DISEASE
     Dosage: UNK
     Route: 042
     Dates: start: 20170125, end: 20170829
  4. INFLIXIMAB [Concomitant]
     Active Substance: INFLIXIMAB
     Dosage: 368 MILLIGRAM, Q4WEEKS
     Route: 042
     Dates: start: 20170921, end: 20180731
  5. REMICADE [Concomitant]
     Active Substance: INFLIXIMAB
     Indication: CROHN^S DISEASE
     Dosage: 368 MILLIGRAM
     Route: 042
     Dates: start: 20040401
  6. MEZAVANT [Concomitant]
     Active Substance: MESALAMINE
     Indication: CROHN^S DISEASE
     Dosage: 2400 MILLIGRAM
     Route: 048
  7. COTRIM FORTE [Concomitant]
     Active Substance: SULFAMETHOXAZOLE\TRIMETHOPRIM
     Dosage: UNK
  8. INFLIXIMAB [Concomitant]
     Active Substance: INFLIXIMAB
     Dosage: 368 MILLIGRAM, Q4WEEKS
     Route: 042
     Dates: start: 20040401, end: 20130715
  9. PREDNISOLON [Concomitant]
     Active Substance: PREDNISOLONE
     Dosage: UNK
  10. AZATHIOPRIN [Suspect]
     Active Substance: AZATHIOPRINE
     Indication: PRODUCT USED FOR UNKNOWN INDICATION
     Dosage: 100 MILLIGRAM
     Route: 048
     Dates: start: 20040901
  11. MEZAVANT [Concomitant]
     Active Substance: MESALAMINE
     Dosage: 1.2 GRAM
  12. BUDENOFALK [Concomitant]
     Active Substance: BUDESONIDE
     Dosage: UNK
  13. VEDOLIZUMAB [Suspect]
     Active Substance: VEDOLIZUMAB
     Dosage: UNK
     Route: 042
     Dates: start: 20200810
  14. INFLIXIMAB [Concomitant]
     Active Substance: INFLIXIMAB
     Dosage: 368 MILLIGRAM, Q4WEEKS
     Route: 042
     Dates: start: 20190130, end: 20200603
  15. INFLIXIMAB [Concomitant]
     Active Substance: INFLIXIMAB
     Dosage: 368 MILLIGRAM, Q4WEEKS
     Route: 042
  16. MESALZIN [Concomitant]
     Dosage: 500 MILLIGRAM

REACTIONS (2)
  - Crohn^s disease [Recovered/Resolved]
  - Kaposi^s sarcoma [Recovered/Resolved]

NARRATIVE: CASE EVENT DATE: 20200703
